FAERS Safety Report 20477244 (Version 1)
Quarter: 2022Q1

REPORT INFORMATION
  Report Type: Report from Study
  Country: US (occurrence: US)
  Receive Date: 20220215
  Receipt Date: 20220215
  Transmission Date: 20220424
  Serious: Yes (Hospitalization)
  Sender: FDA-Public Use
  Company Number: US-ABBVIE-22K-163-4278210-00

PATIENT
  Sex: Female

DRUGS (1)
  1. SKYRIZI [Suspect]
     Active Substance: RISANKIZUMAB-RZAA
     Indication: Psoriasis
     Route: 058

REACTIONS (5)
  - Vision blurred [Unknown]
  - Thrombosis [Not Recovered/Not Resolved]
  - Eye pain [Unknown]
  - Urinary tract infection [Not Recovered/Not Resolved]
  - Psoriasis [Unknown]
